FAERS Safety Report 24202993 (Version 1)
Quarter: 2024Q3

REPORT INFORMATION
  Report Type: Spontaneous
  Country: IN (occurrence: IN)
  Receive Date: 20240813
  Receipt Date: 20240813
  Transmission Date: 20241017
  Serious: Yes (Hospitalization)
  Sender: SOLARIS PHARMA
  Company Number: IN-SPC-000467

PATIENT
  Age: 30 Year
  Sex: Female

DRUGS (3)
  1. METRONIDAZOLE [Suspect]
     Active Substance: METRONIDAZOLE
     Indication: Candida infection
     Dosage: 100 ML, 200 ML/HR
     Route: 065
     Dates: start: 202112
  2. CEFEPIME [Suspect]
     Active Substance: CEFEPIME HYDROCHLORIDE
     Indication: Candida infection
     Dosage: 16.67 ML/HR
     Route: 065
     Dates: start: 202112
  3. AMPHOTERICIN B [Suspect]
     Active Substance: AMPHOTERICIN B
     Indication: Candida infection
     Dosage: 75 ML, 112.5 ML/HR
     Route: 065
     Dates: start: 202112

REACTIONS (3)
  - Therapeutic product effect incomplete [Recovered/Resolved]
  - Enterobacter infection [Recovered/Resolved]
  - Product use in unapproved indication [Unknown]

NARRATIVE: CASE EVENT DATE: 20211201
